FAERS Safety Report 25057294 (Version 7)
Quarter: 2025Q4

REPORT INFORMATION
  Report Type: Report from Study
  Country: CA (occurrence: CA)
  Receive Date: 20250310
  Receipt Date: 20251222
  Transmission Date: 20260117
  Serious: Yes (Hospitalization)
  Sender: ROCHE
  Company Number: CA-ROCHE-10000187046

PATIENT
  Age: 45 Year
  Sex: Female

DRUGS (6)
  1. OCREVUS [Suspect]
     Active Substance: OCRELIZUMAB
     Indication: Primary progressive multiple sclerosis
     Dosage: THEN 600 MG EVERY 6 MONTH
     Route: 042
     Dates: start: 20241119
  2. SHINGRIX [Concomitant]
     Active Substance: RECOMBINANT VARICELLA ZOSTER VIRUS (VZV) GLYCOPROTEIN E
     Dosage: 50MCG
     Route: 030
  3. PREDNISONE [Concomitant]
     Active Substance: PREDNISONE
  4. ADVIL [Concomitant]
     Active Substance: IBUPROFEN
  5. TYLENOL [Concomitant]
     Active Substance: ACETAMINOPHEN
  6. HYDROMORPHONE [Concomitant]
     Active Substance: HYDROMORPHONE

REACTIONS (14)
  - Multiple sclerosis [Recovering/Resolving]
  - Disease progression [Not Recovered/Not Resolved]
  - Muscular weakness [Not Recovered/Not Resolved]
  - Multiple sclerosis relapse [Not Recovered/Not Resolved]
  - Migraine [Not Recovered/Not Resolved]
  - Pain in jaw [Not Recovered/Not Resolved]
  - Neck pain [Not Recovered/Not Resolved]
  - Pain [Not Recovered/Not Resolved]
  - Headache [Not Recovered/Not Resolved]
  - Eye pain [Not Recovered/Not Resolved]
  - Asthenia [Not Recovered/Not Resolved]
  - Fatigue [Not Recovered/Not Resolved]
  - Tinnitus [Not Recovered/Not Resolved]
  - Nasopharyngitis [Not Recovered/Not Resolved]

NARRATIVE: CASE EVENT DATE: 20250120
